FAERS Safety Report 12080889 (Version 1)
Quarter: 2016Q1

REPORT INFORMATION
  Report Type: Spontaneous
  Country: US (occurrence: US)
  Receive Date: 20160216
  Receipt Date: 20160216
  Transmission Date: 20160526
  Serious: No
  Sender: FDA-Public Use
  Company Number: US-IMPAX LABORATORIES, INC-2015-IPXL-01370

PATIENT
  Sex: Female

DRUGS (1)
  1. URSODIOL. [Suspect]
     Active Substance: URSODIOL
     Indication: PRODUCT USED FOR UNKNOWN INDICATION
     Dosage: 250 MG, UNK
     Route: 065

REACTIONS (1)
  - Contraindicated drug administered [Unknown]
